FAERS Safety Report 5126361-6 (Version None)
Quarter: 2006Q4

REPORT INFORMATION
  Report Type: 
  Country: None (occurrence: None)
  Receive Date: 20061010
  Receipt Date: 20060925
  Transmission Date: 20070319
  Serious: Yes (Death)
  Sender: FDA-Public Use
  Company Number: 2006S1007427

PATIENT
  Age: 38 Year
  Sex: Female

DRUGS (7)
  1. CLOZAPINE [Suspect]
     Indication: PSYCHOTIC DISORDER
     Dosage: 300 MG;HS;PO
     Route: 048
     Dates: start: 20030401, end: 20060701
  2. CLOZAPINE [Suspect]
     Indication: SCHIZOAFFECTIVE DISORDER
     Dosage: 300 MG;HS;PO
     Route: 048
     Dates: start: 20030401, end: 20060701
  3. VICOPROFEN (7.5 MG) [Suspect]
     Indication: BACK PAIN
     Dosage: 7.5 MG;PRN;PO
     Route: 048
     Dates: start: 20050101
  4. GABAPENTIN [Concomitant]
  5. RISPERIDONE [Concomitant]
  6. ESCITALOPRAM [Concomitant]
  7. ZOLPIDEM TARTRATE [Concomitant]

REACTIONS (3)
  - BACK PAIN [None]
  - NARCOTIC INTOXICATION [None]
  - TREATMENT NONCOMPLIANCE [None]
